FAERS Safety Report 8592349-6 (Version None)
Quarter: 2012Q3

REPORT INFORMATION
  Report Type: 
  Country: None (occurrence: None)
  Receive Date: 20120814
  Receipt Date: 20120730
  Transmission Date: 20120928
  Serious: Yes (Disabling, Other)
  Sender: FDA-Public Use
  Company Number: SI-INCYTE CORPORATION-2012IN000928

PATIENT
  Sex: Female
  Weight: 60 kg

DRUGS (1)
  1. INC424 [Suspect]
     Indication: MYELOFIBROSIS
     Dosage: 10 MG, BID
     Dates: start: 20111201, end: 20120516

REACTIONS (2)
  - OEDEMA PERIPHERAL [None]
  - BONE PAIN [None]
